FAERS Safety Report 10164791 (Version 1)
Quarter: 2014Q2

REPORT INFORMATION
  Report Type: Spontaneous
  Country: US (occurrence: US)
  Receive Date: 20140510
  Receipt Date: 20140510
  Transmission Date: 20141212
  Serious: No
  Sender: FDA-Public Use
  Company Number: US-BRISTOL-MYERS SQUIBB COMPANY-20167417

PATIENT
  Age: 60 Year
  Sex: Male
  Weight: 139.22 kg

DRUGS (2)
  1. BYDUREON [Suspect]
     Route: 058
  2. JANUVIA [Concomitant]

REACTIONS (7)
  - Injection site nodule [Not Recovered/Not Resolved]
  - Injection site pain [Unknown]
  - Injection site pruritus [Unknown]
  - Injection site erythema [Unknown]
  - Weight decreased [Unknown]
  - Blood glucose fluctuation [Unknown]
  - Nausea [Unknown]
